FAERS Safety Report 8231486-2 (Version None)
Quarter: 2012Q1

REPORT INFORMATION
  Report Type: 
  Country: None (occurrence: None)
  Receive Date: 20120323
  Receipt Date: 20120315
  Transmission Date: 20120608
  Serious: Yes (Hospitalization, Other)
  Sender: FDA-Public Use
  Company Number: PHHY2012MX023750

PATIENT
  Age: 65 Year
  Sex: Female

DRUGS (2)
  1. EXFORGE HCT [Suspect]
     Indication: HYPERTENSION
     Dosage: 320 MG VALSARTAN, 10 MG AMLODIPINE AND 25 MG HCT, DAILY
     Dates: start: 20120101
  2. EXFORGE HCT [Suspect]
     Dosage: 0.5 DF X (320/10/25 MG), DAILY
     Dates: start: 20120301

REACTIONS (3)
  - BLOOD PRESSURE DECREASED [None]
  - BREAST MASS [None]
  - WRONG TECHNIQUE IN DRUG USAGE PROCESS [None]
